FAERS Safety Report 5834138-9 (Version None)
Quarter: 2008Q3

REPORT INFORMATION
  Report Type: 
  Country: None (occurrence: None)
  Receive Date: 20080801
  Receipt Date: 20080725
  Transmission Date: 20090109
  Serious: Yes (Life-Threatening, Hospitalization, Other)
  Sender: FDA-Public Use
  Company Number: 50839

PATIENT
  Age: 50 Year
  Sex: Male

DRUGS (1)
  1. CARBOPLATIN [Suspect]

REACTIONS (16)
  - ASPIRATION [None]
  - BLOOD CREATINE INCREASED [None]
  - CARDIAC ENZYMES INCREASED [None]
  - CARDIAC FAILURE CONGESTIVE [None]
  - DEEP VEIN THROMBOSIS [None]
  - EJECTION FRACTION DECREASED [None]
  - EMBOLIC STROKE [None]
  - HAEMORRHAGE INTRACRANIAL [None]
  - INFARCTION [None]
  - LIVER DISORDER [None]
  - LIVER FUNCTION TEST ABNORMAL [None]
  - MASS [None]
  - MONOPLEGIA [None]
  - MULTI-ORGAN FAILURE [None]
  - RENAL DISORDER [None]
  - VOMITING [None]
